FAERS Safety Report 9167213 (Version 3)
Quarter: 2013Q3

REPORT INFORMATION
  Report Type: Spontaneous
  Country: US (occurrence: None)
  Receive Date: 20130228
  Receipt Date: 20130929
  Transmission Date: 20140515
  Serious: Yes (Hospitalization, Other)
  Sender: FDA-Public Use
  Company Number: JPI-P-029957

PATIENT
  Age: 71 Year
  Sex: Female

DRUGS (1)
  1. XYREM (500 MILLIGRAM/MILLILITERS, SOLUTION) (SODIUM OXYBATE) [Suspect]
     Indication: CATAPLEXY
     Dosage: 435 GM (2.25MG 2 IN 1 DAY), ORAL
     Route: 048
     Dates: start: 20111018, end: 20120416

REACTIONS (3)
  - Loss of consciousness [None]
  - Fall [None]
  - Laceration [None]
